FAERS Safety Report 26085669 (Version 2)
Quarter: 2025Q4

REPORT INFORMATION
  Report Type: Report from Study
  Country: CA (occurrence: CA)
  Receive Date: 20251125
  Receipt Date: 20251204
  Transmission Date: 20260117
  Serious: Yes (Death, Other)
  Sender: RECORDATI
  Company Number: CA-ORPHANEU-2025008257

PATIENT
  Age: 64 Year
  Sex: Male
  Weight: 93.4 kg

DRUGS (1)
  1. ENJAYMO [Suspect]
     Active Substance: SUTIMLIMAB-JOME
     Indication: Cold type haemolytic anaemia
     Dosage: 7500 MG WEEKLY X 2 WEEKS THEN Q2WEEKLY (1 DOSE)
     Dates: start: 20251113, end: 20251113

REACTIONS (3)
  - Cardiac arrest [Fatal]
  - Atrial fibrillation [Unknown]
  - Shock [Unknown]

NARRATIVE: CASE EVENT DATE: 20251114
